FAERS Safety Report 5940516-X (Version None)
Quarter: 2008Q4

REPORT INFORMATION
  Report Type: 
  Country: None (occurrence: None)
  Receive Date: 20081103
  Receipt Date: 20081103
  Transmission Date: 20090506
  Serious: No
  Sender: FDA-Public Use
  Company Number: None

PATIENT

DRUGS (2)
  1. NOVOLOG [Suspect]
     Dosage: INJECTABLE
  2. NOVOLOG MIX 70/30 [Suspect]
     Dosage: INJECTABLE 70 UNITS/ML, 30 UNITS/ML

REACTIONS (4)
  - DRUG DISPENSING ERROR [None]
  - MEDICATION ERROR [None]
  - NO ADVERSE EVENT [None]
  - WRONG DRUG ADMINISTERED [None]
